FAERS Safety Report 7208602-4 (Version None)
Quarter: 2011Q1

REPORT INFORMATION
  Report Type: 
  Country: None (occurrence: None)
  Receive Date: 20110104
  Receipt Date: 20101223
  Transmission Date: 20110831
  Serious: Yes (Other)
  Sender: FDA-Public Use
  Company Number: BR-BAYER-2010-007659

PATIENT
  Sex: Male
  Weight: 65 kg

DRUGS (11)
  1. REMERON [Concomitant]
     Indication: ANTIDEPRESSANT THERAPY
     Dosage: 1 DF, HS
     Route: 048
     Dates: start: 20100501
  2. NEXAVAR [Suspect]
     Dosage: 1 DF, QD
     Route: 048
     Dates: start: 20101109
  3. ALDACTONE [Concomitant]
     Indication: PRODUCT USED FOR UNKNOWN INDICATION
     Dosage: 50 MG, OM
     Route: 048
     Dates: start: 20101211
  4. NEXAVAR [Suspect]
     Indication: HEPATIC NEOPLASM MALIGNANT
     Dosage: 1 DF, QD
     Route: 048
     Dates: start: 20100827, end: 20100915
  5. MOTILIUM [Concomitant]
     Indication: PROPHYLAXIS
     Dosage: 1 DF, MT
     Route: 048
  6. LASIX M [Concomitant]
     Indication: DIURETIC THERAPY
     Dosage: 20 MG, OM
     Route: 048
     Dates: start: 20101211
  7. MESALAMINE [Concomitant]
     Indication: INFLAMMATORY BOWEL DISEASE
     Dosage: 400 MG, OM
     Route: 048
     Dates: start: 20100828
  8. NEXAVAR [Suspect]
     Dosage: 1 DF, BID
     Route: 048
     Dates: start: 20100916, end: 20101108
  9. CEPHALOSPORINS AND RELATED SUBSTANCES [Concomitant]
     Indication: PROPHYLAXIS
     Dosage: 7.5 ML, OM
     Route: 048
  10. CAMIN [PIPERAZINE CITRATE] [Concomitant]
     Indication: NEOPLASM MALIGNANT
     Dosage: UNK
     Route: 042
     Dates: start: 20100802
  11. OMEPRAZOLE [Concomitant]
     Indication: PROPHYLAXIS
     Dosage: 1 DF, BID
     Route: 048

REACTIONS (9)
  - FAECES HARD [None]
  - DYSGEUSIA [None]
  - WEIGHT DECREASED [None]
  - FLATULENCE [None]
  - ABDOMINAL DISTENSION [None]
  - ASCITES [None]
  - DECREASED APPETITE [None]
  - CONSTIPATION [None]
  - ABDOMINAL PAIN [None]
